FAERS Safety Report 5858511-8 (Version None)
Quarter: 2008Q3

REPORT INFORMATION
  Report Type: 
  Country: None (occurrence: None)
  Receive Date: 20080826
  Receipt Date: 20080814
  Transmission Date: 20090109
  Serious: Yes (Other)
  Sender: FDA-Public Use
  Company Number: US-PFIZER INC-2008055955

PATIENT
  Sex: Female
  Weight: 65.3 kg

DRUGS (3)
  1. LYRICA [Suspect]
     Indication: NEURALGIA
     Route: 048
  2. ACETYLSALICYLIC ACID SRT [Concomitant]
  3. TYLENOL (CAPLET) [Concomitant]

REACTIONS (11)
  - ABNORMAL BEHAVIOUR [None]
  - ASTHENIA [None]
  - CONFUSIONAL STATE [None]
  - DISTURBANCE IN ATTENTION [None]
  - DIZZINESS [None]
  - GAIT DISTURBANCE [None]
  - MUSCULOSKELETAL STIFFNESS [None]
  - MYALGIA [None]
  - NEURALGIA [None]
  - OEDEMA PERIPHERAL [None]
  - WEIGHT INCREASED [None]
